FAERS Safety Report 22104858 (Version 1)
Quarter: 2023Q1

REPORT INFORMATION
  Report Type: Spontaneous
  Country: CA (occurrence: CA)
  Receive Date: 20230316
  Receipt Date: 20230316
  Transmission Date: 20230417
  Serious: Yes (Other)
  Sender: FDA-Public Use
  Company Number: CA-BAUSCH-BL-2023-004260

PATIENT
  Age: 68 Year
  Sex: Male
  Weight: 104 kg

DRUGS (10)
  1. BRODALUMAB [Suspect]
     Active Substance: BRODALUMAB
     Indication: Psoriasis
     Route: 058
  2. BRODALUMAB [Suspect]
     Active Substance: BRODALUMAB
     Route: 058
  3. BRODALUMAB [Suspect]
     Active Substance: BRODALUMAB
     Route: 058
  4. BRODALUMAB [Suspect]
     Active Substance: BRODALUMAB
     Route: 058
  5. BETAMETHASONE DIPROPIONATE\CALCIPOTRIENE [Suspect]
     Active Substance: BETAMETHASONE DIPROPIONATE\CALCIPOTRIENE
     Indication: Product used for unknown indication
     Route: 065
  6. COMIRNATY [Suspect]
     Active Substance: TOZINAMERAN
     Indication: COVID-19 immunisation
     Route: 065
  7. ELASOMERAN [Suspect]
     Active Substance: ELASOMERAN
     Indication: Product used for unknown indication
     Route: 065
  8. INDAPAMIDE\PERINDOPRIL ERBUMINE [Concomitant]
     Active Substance: INDAPAMIDE\PERINDOPRIL ERBUMINE
     Indication: Product used for unknown indication
     Route: 065
  9. ROSUVASTATIN [Concomitant]
     Active Substance: ROSUVASTATIN
     Indication: Product used for unknown indication
     Route: 065
  10. WARFARIN [Concomitant]
     Active Substance: WARFARIN
     Indication: Product used for unknown indication
     Route: 065

REACTIONS (20)
  - Blood pressure fluctuation [Not Recovered/Not Resolved]
  - Disease recurrence [Not Recovered/Not Resolved]
  - Eczema [Not Recovered/Not Resolved]
  - Gout [Not Recovered/Not Resolved]
  - Heart rate increased [Not Recovered/Not Resolved]
  - Joint swelling [Not Recovered/Not Resolved]
  - Mass [Not Recovered/Not Resolved]
  - Pain in extremity [Not Recovered/Not Resolved]
  - Poor peripheral circulation [Not Recovered/Not Resolved]
  - Psoriasis [Not Recovered/Not Resolved]
  - Rash pruritic [Not Recovered/Not Resolved]
  - Skin induration [Not Recovered/Not Resolved]
  - Interchange of vaccine products [Not Recovered/Not Resolved]
  - Road traffic accident [Not Recovered/Not Resolved]
  - Bursitis [Not Recovered/Not Resolved]
  - Arthralgia [Not Recovered/Not Resolved]
  - COVID-19 [Not Recovered/Not Resolved]
  - Headache [Not Recovered/Not Resolved]
  - Therapy interrupted [Not Recovered/Not Resolved]
  - Drug ineffective [Not Recovered/Not Resolved]
